FAERS Safety Report 8804170 (Version 2)
Quarter: 2012Q4

REPORT INFORMATION
  Report Type: 
  Country: US (occurrence: US)
  Receive Date: 20120924
  Receipt Date: 20121126
  Transmission Date: 20130627
  Serious: Yes (Other)
  Sender: FDA-Public Use
  Company Number: US-BAYER-2012-098133

PATIENT
  Age: 45 Year
  Sex: Female

DRUGS (6)
  1. YAZ [Suspect]
  2. YASMIN [Suspect]
  3. OCELLA [Suspect]
  4. VALIUM [Concomitant]
  5. ADVAIR [Concomitant]
  6. ZYRTEC [Concomitant]

REACTIONS (2)
  - Injury [None]
  - Deep vein thrombosis [None]
